FAERS Safety Report 8757645 (Version 1)
Quarter: 2012Q4

REPORT INFORMATION
  Report Type: 
  Country: CN (occurrence: CN)
  Receive Date: 20120828
  Receipt Date: 20120828
  Transmission Date: 20130627
  Serious: Yes (Hospitalization, Other)
  Sender: FDA-Public Use
  Company Number: PHHY2012CN073072

PATIENT
  Sex: Female
  Weight: 65 kg

DRUGS (3)
  1. SANDIMMUN NEORAL [Suspect]
     Indication: RENAL TRANSPLANT
     Dosage: 75 mg, BID
     Dates: start: 20020419
  2. PREDNISONE [Suspect]
     Indication: RENAL TRANSPLANT
     Dates: start: 20020419
  3. CELLCEPT [Suspect]
     Indication: RENAL TRANSPLANT
     Dosage: 500 mg, BID
     Dates: start: 20020419

REACTIONS (3)
  - Breast cancer [Recovered/Resolved]
  - White blood cell count decreased [Recovered/Resolved]
  - Bone pain [Recovered/Resolved]
